FAERS Safety Report 11898013 (Version 2)
Quarter: 2017Q1

REPORT INFORMATION
  Report Type: Spontaneous
  Country: US (occurrence: US)
  Receive Date: 20160108
  Receipt Date: 20170218
  Transmission Date: 20170428
  Serious: Yes (Other)
  Sender: FDA-Public Use
  Company Number: US-ELI_LILLY_AND_COMPANY-US201601000866

PATIENT
  Sex: Male

DRUGS (2)
  1. CYMBALTA [Suspect]
     Active Substance: DULOXETINE HYDROCHLORIDE
     Indication: PAIN
     Dosage: UNK
  2. CYMBALTA [Suspect]
     Active Substance: DULOXETINE HYDROCHLORIDE
     Indication: DEPRESSION

REACTIONS (11)
  - Drug withdrawal syndrome [Unknown]
  - Insomnia [Unknown]
  - Lethargy [Unknown]
  - Affect lability [Unknown]
  - Paraesthesia [Unknown]
  - Irritability [Unknown]
  - Suicidal ideation [Unknown]
  - Mood swings [Unknown]
  - Hyperhidrosis [Unknown]
  - Dizziness [Unknown]
  - Anxiety [Unknown]
